FAERS Safety Report 8103766-2 (Version None)
Quarter: 2012Q1

REPORT INFORMATION
  Report Type: 
  Country: None (occurrence: None)
  Receive Date: 20111222
  Receipt Date: 20110915
  Transmission Date: 20120608
  Serious: Yes (Hospitalization)
  Sender: FDA-Public Use
  Company Number: UTC-009747

PATIENT
  Age: 46 Year
  Sex: Female
  Weight: 119 kg

DRUGS (5)
  1. TYVASO [Suspect]
     Indication: PULMONARY ARTERIAL HYPERTENSION
     Dosage: (30 MCG, 4 SESSIONS), INHALATION
     Route: 055
     Dates: start: 20101111
  2. TRACLEER [Suspect]
  3. ADCIRCA [Suspect]
  4. DIURETICS [Concomitant]
  5. COUMADIN [Suspect]

REACTIONS (3)
  - WEIGHT INCREASED [None]
  - FLUID OVERLOAD [None]
  - FLUID RETENTION [None]
